FAERS Safety Report 4511612-9 (Version None)
Quarter: 2004Q4

REPORT INFORMATION
  Report Type: 
  Country: None (occurrence: None)
  Receive Date: 20041129
  Receipt Date: 20041015
  Transmission Date: 20050328
  Serious: No
  Sender: FDA-Public Use
  Company Number: US-BRISTOL-MYERS SQUIBB COMPANY-12733945

PATIENT
  Age: 46 Year
  Sex: Male

DRUGS (3)
  1. ABILIFY [Suspect]
     Indication: BIPOLAR DISORDER
     Route: 048
  2. ABILIFY [Suspect]
     Indication: OBSESSIVE-COMPULSIVE DISORDER
     Route: 048
  3. ABILIFY [Suspect]
     Indication: MENTAL RETARDATION SEVERITY UNSPECIFIED
     Route: 048

REACTIONS (1)
  - URINARY INCONTINENCE [None]
